FAERS Safety Report 20855358 (Version 1)
Quarter: 2022Q2

REPORT INFORMATION
  Report Type: Spontaneous
  Country: US (occurrence: US)
  Receive Date: 20220520
  Receipt Date: 20220520
  Transmission Date: 20220721
  Serious: No
  Sender: FDA-Public Use
  Company Number: US-PFIZER INC-202200718607

PATIENT
  Age: 91 Year
  Sex: Female
  Weight: 80.74 kg

DRUGS (1)
  1. IBRANCE [Suspect]
     Active Substance: PALBOCICLIB
     Dosage: 75 MG, CYCLIC (75MG; 21 DAYS ON AND 7 DAYS OFF)

REACTIONS (1)
  - Dysphagia [Unknown]
